FAERS Safety Report 10299524 (Version 1)
Quarter: 2014Q3

REPORT INFORMATION
  Report Type: Spontaneous
  Country: CA (occurrence: CA)
  Receive Date: 20140711
  Receipt Date: 20140711
  Transmission Date: 20150326
  Serious: Yes (Death)
  Sender: FDA-Public Use
  Company Number: CA-RB PHARMACEUTICALS LIMITED-RB-69152-2014

PATIENT

DRUGS (3)
  1. OTHER OPIOIDS [Suspect]
     Active Substance: UNSPECIFIED INGREDIENT
     Indication: DRUG DEPENDENCE
     Dosage: UNK
     Route: 065
     Dates: start: 2010, end: 20140621
  2. BENZODIAZEPINE DERIVATIVES [Suspect]
     Active Substance: BENZODIAZEPINE
     Indication: SUBSTANCE USE
     Dosage: UNK
     Route: 065
     Dates: end: 20140621
  3. SUBOXONE [Suspect]
     Active Substance: BUPRENORPHINE HYDROCHLORIDE\NALOXONE HYDROCHLORIDE
     Indication: DRUG DEPENDENCE
     Dosage: 8 MG, QD
     Route: 060
     Dates: start: 201403, end: 20140621

REACTIONS (2)
  - Drug abuse [Unknown]
  - Overdose [Fatal]

NARRATIVE: CASE EVENT DATE: 20140621
